FAERS Safety Report 9212922 (Version 1)
Quarter: 2013Q1

REPORT INFORMATION
  Report Type: Spontaneous
  Country: US (occurrence: None)
  Receive Date: 20120824
  Receipt Date: 20120824
  Transmission Date: 20140127
  Serious: Yes (Hospitalization, Other)
  Sender: FDA-Public Use
  Company Number: A-US2012-64728

PATIENT
  Age: 43 Year
  Sex: Female

DRUGS (12)
  1. VELETRI [Suspect]
     Indication: PULMONARY ARTERIAL HYPERTENSION
     Dosage: UNK, INTRAVENOUS
  2. CICLETANINE HYDROCHLORIDE (CICLETANINE HYDROCHLORIDE) [Concomitant]
  3. WARFARIN (WARFARIN SODIUM) (TABLET) [Concomitant]
  4. FUROSEMIDE (FUROSEMIDE) [Concomitant]
  5. DIGOXIN (DIGOXIN) [Concomitant]
  6. DIGOXIN (DIGOXIN) [Concomitant]
  7. COMBIVENT (IPRATROPIUM BROMIDE, SALBUTAMOL SULFATE) [Concomitant]
  8. REVATIO (SILDENAFIL CITRATE) (UNKNOWN) (SILDENAFIL) [Concomitant]
  9. POTASSIUM (POTASSIUM CHLORIDE) [Concomitant]
  10. CITALOPRAM (CITALOPRAM HYDROCHLORIDE) [Concomitant]
  11. LOPERAMIDE (LOPERAMINDE) [Concomitant]
  12. VICODIN (HYDROCODONE BITARTRATE, PARACETAMOL) [Concomitant]

REACTIONS (6)
  - Device related infection [None]
  - Pyrexia [None]
  - Bacterial infection [None]
  - Staphylococcal infection [None]
  - Catheter site inflammation [None]
  - Catheter site discharge [None]
